FAERS Safety Report 21494816 (Version 5)
Quarter: 2025Q4

REPORT INFORMATION
  Report Type: Report from Study
  Country: JP (occurrence: JP)
  Receive Date: 20221021
  Receipt Date: 20251029
  Transmission Date: 20260117
  Serious: Yes (Hospitalization, Other)
  Sender: ABBVIE
  Company Number: JP-TAKEDA-2022TJP075764

PATIENT
  Age: 68 Year
  Sex: Male
  Weight: 55.8 kg

DRUGS (1)
  1. LEUPROLIDE ACETATE [Suspect]
     Active Substance: LEUPROLIDE ACETATE
     Indication: Bulbospinal muscular atrophy congenital
     Dosage: 11.25 MILLIGRAM, Q3MONTHS
     Route: 065
     Dates: start: 20220601, end: 20220824

REACTIONS (3)
  - Myopathy [Recovered/Resolved]
  - Gait disturbance [Not Recovered/Not Resolved]
  - Megacolon [Recovered/Resolved with Sequelae]

NARRATIVE: CASE EVENT DATE: 20220801
